FAERS Safety Report 17641007 (Version 1)
Quarter: 2020Q2

REPORT INFORMATION
  Report Type: Spontaneous
  Country: CA (occurrence: CA)
  Receive Date: 20200407
  Receipt Date: 20200407
  Transmission Date: 20200713
  Serious: Yes (Other)
  Sender: FDA-Public Use
  Company Number: CA-NAPPMUNDI-CAN-2020-0010806

PATIENT
  Age: 35 Year
  Sex: Female
  Weight: 97 kg

DRUGS (22)
  1. ACTEMRA [Suspect]
     Active Substance: TOCILIZUMAB
     Indication: TAKAYASU^S ARTERITIS
     Dosage: 800 MG, MONTHLY (1 EVERY 1 MONTH)
     Route: 042
  2. AMLODIPINE BESILATE [Concomitant]
     Active Substance: AMLODIPINE BESYLATE
     Dosage: 10 MG, DAILY (1 EVERY 1 DAYS)
     Route: 048
  3. LANSOPRAZOLE. [Concomitant]
     Active Substance: LANSOPRAZOLE
     Dosage: 1 EVERY 1 DAYS
     Route: 048
  4. METHOTREXATE. [Concomitant]
     Active Substance: METHOTREXATE
     Dosage: UNK
  5. METHYLPREDNISOLONE SODIUM SUCCINATE. [Concomitant]
     Active Substance: METHYLPREDNISOLONE SODIUM SUCCINATE
     Indication: PREMEDICATION
     Dosage: 100 MG, UNK
     Route: 042
  6. ACETYLSALICYLIC ACID [Concomitant]
     Active Substance: ASPIRIN
     Dosage: UNK
  7. PREDNISONE. [Concomitant]
     Active Substance: PREDNISONE
     Dosage: 6 MG, UNK
     Route: 048
  8. PREDNISONE. [Concomitant]
     Active Substance: PREDNISONE
     Dosage: 55 MG, DAILY (1 EVERY 1 DAYS)
     Route: 048
  9. ACTEMRA [Suspect]
     Active Substance: TOCILIZUMAB
     Indication: TAKAYASU^S ARTERITIS
     Dosage: 800 MG, MONTHLY (1 EVERY 1 MONTH)
     Route: 042
  10. ACTEMRA [Suspect]
     Active Substance: TOCILIZUMAB
     Indication: RHEUMATOID ARTHRITIS
  11. ACTEMRA [Suspect]
     Active Substance: TOCILIZUMAB
     Indication: RHEUMATOID ARTHRITIS
  12. DIPHENHYDRAMINE. [Suspect]
     Active Substance: DIPHENHYDRAMINE
     Indication: PREMEDICATION
     Dosage: 50 MG, WEEKLY (1 EVERY 1 WEEKS)
     Route: 048
  13. RITUXAN [Suspect]
     Active Substance: RITUXIMAB
     Indication: TAKAYASU^S ARTERITIS
     Dosage: 700 MG, WEEKLY (1 EVERY 1 WEEKS)
     Route: 042
  14. SPIRONOLACTONE. [Concomitant]
     Active Substance: SPIRONOLACTONE
     Dosage: 25 MG, DAILY (1 EVERY 1 DAYS)
     Route: 048
  15. AMLODIPINE [Concomitant]
     Active Substance: AMLODIPINE BESYLATE
  16. PERINDOPRIL [Concomitant]
     Active Substance: PERINDOPRIL
     Dosage: 8 MG, DAILY (1 EVERY 1 DAYS)
     Route: 048
  17. ASA [Concomitant]
     Active Substance: ASPIRIN
     Dosage: UNK
  18. HYDROCHLOROTHIAZIDE. [Concomitant]
     Active Substance: HYDROCHLOROTHIAZIDE
     Dosage: 25 MG, DAILY (1 EVERY 1 DAYS)
     Route: 048
  19. MORPHINE SULFATE. [Suspect]
     Active Substance: MORPHINE SULFATE
     Indication: PRODUCT USED FOR UNKNOWN INDICATION
     Dosage: UNK
     Route: 065
  20. ALENDRONATE SODIUM. [Concomitant]
     Active Substance: ALENDRONATE SODIUM
     Dosage: UNK
  21. PREDNISONE. [Concomitant]
     Active Substance: PREDNISONE
     Dosage: 10 MG, DAILY (1 EVERY 1 DAYS)
     Route: 048
  22. PREDNISONE. [Concomitant]
     Active Substance: PREDNISONE
     Dosage: 60 MG, DAILY (1 EVERY 1 DAYS)
     Route: 048

REACTIONS (15)
  - Pruritus [Not Recovered/Not Resolved]
  - Off label use [Not Recovered/Not Resolved]
  - Sinusitis [Not Recovered/Not Resolved]
  - Blood pressure fluctuation [Not Recovered/Not Resolved]
  - Drug hypersensitivity [Not Recovered/Not Resolved]
  - Injection site bruising [Not Recovered/Not Resolved]
  - Oral herpes [Not Recovered/Not Resolved]
  - Alanine aminotransferase increased [Not Recovered/Not Resolved]
  - Erythema [Not Recovered/Not Resolved]
  - Somnolence [Not Recovered/Not Resolved]
  - Nasopharyngitis [Not Recovered/Not Resolved]
  - Erythema nodosum [Not Recovered/Not Resolved]
  - Contusion [Not Recovered/Not Resolved]
  - Fungal infection [Not Recovered/Not Resolved]
  - Rash [Not Recovered/Not Resolved]
